FAERS Safety Report 19328204 (Version 13)
Quarter: 2024Q4

REPORT INFORMATION
  Report Type: Report from Study
  Country: US (occurrence: US)
  Receive Date: 20210528
  Receipt Date: 20241009
  Transmission Date: 20250114
  Serious: Yes (Other)
  Sender: ROCHE
  Company Number: US-ROCHE-2839076

PATIENT
  Age: 56 Year
  Sex: Female
  Weight: 72.57 kg

DRUGS (29)
  1. ACTEMRA [Suspect]
     Active Substance: TOCILIZUMAB
     Indication: Rheumatoid arthritis
     Dosage: INJECT 162MG SUBCUTANEOUSLY EVERY WEEK
     Route: 058
  2. ACTEMRA [Suspect]
     Active Substance: TOCILIZUMAB
     Indication: Arthralgia
     Route: 058
  3. ACTEMRA [Suspect]
     Active Substance: TOCILIZUMAB
     Route: 058
  4. ACTEMRA [Suspect]
     Active Substance: TOCILIZUMAB
     Route: 058
  5. ACTEMRA [Suspect]
     Active Substance: TOCILIZUMAB
     Route: 058
  6. ACTEMRA [Suspect]
     Active Substance: TOCILIZUMAB
     Route: 058
     Dates: start: 2016
  7. ALBUTEROL SULFATE [Concomitant]
     Active Substance: ALBUTEROL SULFATE
     Indication: Asthma
  8. ALPRAZOLAM [Concomitant]
     Active Substance: ALPRAZOLAM
     Indication: Palpitations
  9. ALPRAZOLAM [Concomitant]
     Active Substance: ALPRAZOLAM
  10. AMLODIPINE [Concomitant]
     Active Substance: AMLODIPINE BESYLATE
     Route: 048
  11. ATORVASTATIN [Concomitant]
     Active Substance: ATORVASTATIN
     Route: 048
  12. BACLOFEN [Concomitant]
     Active Substance: BACLOFEN
     Route: 048
  13. BUSPIRONE [Concomitant]
     Active Substance: BUSPIRONE HYDROCHLORIDE
     Route: 048
  14. CARBAMAZEPINE [Concomitant]
     Active Substance: CARBAMAZEPINE
     Route: 048
  15. CARVEDILOL [Concomitant]
     Active Substance: CARVEDILOL
     Route: 048
  16. diphenoxylate, atropine [Concomitant]
     Route: 048
  17. GABAPENTIN [Concomitant]
     Active Substance: GABAPENTIN
     Route: 048
  18. LEVOMEFOLATE CALCIUM [Concomitant]
     Active Substance: LEVOMEFOLATE CALCIUM
     Route: 048
  19. MELATONIN [Concomitant]
     Active Substance: MELATONIN
     Route: 048
  20. MIRTAZAPINE [Concomitant]
     Active Substance: MIRTAZAPINE
     Route: 048
  21. OXYCODONE [Concomitant]
     Active Substance: OXYCODONE
     Route: 048
  22. PANTOPRAZOLE [Concomitant]
     Active Substance: PANTOPRAZOLE
     Route: 048
  23. PREGABALIN [Concomitant]
     Active Substance: PREGABALIN
     Route: 048
  24. QUETIAPINE [Concomitant]
     Active Substance: QUETIAPINE
     Route: 048
  25. XARELTO [Concomitant]
     Active Substance: RIVAROXABAN
     Route: 048
  26. SENNOSIDES [Concomitant]
     Active Substance: SENNOSIDES
     Route: 048
  27. SPIRONOLACTONE [Concomitant]
     Active Substance: SPIRONOLACTONE
     Route: 048
  28. TELMISARTAN [Concomitant]
     Active Substance: TELMISARTAN
     Route: 048
  29. VILAZODONE [Concomitant]
     Active Substance: VILAZODONE
     Route: 048

REACTIONS (4)
  - Craniocerebral injury [Recovered/Resolved with Sequelae]
  - Cerebrovascular accident [Unknown]
  - Speech disorder [Unknown]
  - Memory impairment [Unknown]

NARRATIVE: CASE EVENT DATE: 20180101
